FAERS Safety Report 19971874 (Version 2)
Quarter: 2021Q4

REPORT INFORMATION
  Report Type: Report from Study
  Country: BR (occurrence: BR)
  Receive Date: 20211019
  Receipt Date: 20211021
  Transmission Date: 20220303
  Serious: Yes (Hospitalization)
  Sender: FDA-Public Use
  Company Number: NVSC2021BR236753

PATIENT
  Age: 92 Year
  Sex: Female

DRUGS (3)
  1. DIOVAN [Suspect]
     Active Substance: VALSARTAN
     Indication: Product used for unknown indication
     Dosage: UNK (STARTED 20 YEARS AGO)
     Route: 065
     Dates: end: 202110
  2. DIOVAN [Suspect]
     Active Substance: VALSARTAN
     Dosage: 0.5 DF
     Route: 065
     Dates: start: 202110
  3. ISKIMIL [Concomitant]
     Indication: Product used for unknown indication
     Dosage: UNK, 20 YEAR AGO
     Route: 065

REACTIONS (2)
  - Diverticulitis [Unknown]
  - Wrong technique in product usage process [Not Recovered/Not Resolved]

NARRATIVE: CASE EVENT DATE: 20211001
